FAERS Safety Report 14779767 (Version 23)
Quarter: 2022Q2

REPORT INFORMATION
  Report Type: Spontaneous
  Country: US (occurrence: US)
  Receive Date: 20180419
  Receipt Date: 20220504
  Transmission Date: 20220720
  Serious: Yes (Other)
  Sender: FDA-Public Use
  Company Number: US-PFIZER INC-2018159616

PATIENT
  Age: 60 Year
  Sex: Male
  Weight: 76.19 kg

DRUGS (5)
  1. XELJANZ XR [Suspect]
     Active Substance: TOFACITINIB CITRATE
     Indication: Rheumatoid arthritis
     Dosage: 11 MG, ONCE A DAY
     Route: 048
     Dates: start: 20180222, end: 201807
  2. XELJANZ XR [Suspect]
     Active Substance: TOFACITINIB CITRATE
     Dosage: 11 MG, DAILY, (TAKEN FOR 2 WEEKS AND WAS ILLEGIBLE)
  3. CEPHALEXIN [Concomitant]
     Active Substance: CEPHALEXIN
     Dosage: 500 MG
  4. OLMESARTAN MEDOXOMIL [Concomitant]
     Active Substance: OLMESARTAN MEDOXOMIL
     Dosage: 20 MG
  5. OLMESARTAN [Concomitant]
     Active Substance: OLMESARTAN
     Indication: Hypertension
     Dosage: UNK

REACTIONS (24)
  - Prostate infection [Recovered/Resolved]
  - Kidney infection [Unknown]
  - Rheumatoid arthritis [Unknown]
  - Loss of consciousness [Unknown]
  - Drug dependence [Unknown]
  - Back pain [Unknown]
  - Chest pain [Unknown]
  - Cardiac disorder [Unknown]
  - Hypertension [Unknown]
  - Peripheral swelling [Unknown]
  - Pain in extremity [Unknown]
  - Mouth ulceration [Unknown]
  - Oral infection [Unknown]
  - Costochondritis [Recovered/Resolved]
  - Condition aggravated [Recovered/Resolved]
  - Decreased immune responsiveness [Unknown]
  - Infection [Unknown]
  - Nasopharyngitis [Unknown]
  - Urinary tract infection [Recovered/Resolved]
  - General physical health deterioration [Not Recovered/Not Resolved]
  - Mobility decreased [Unknown]
  - Tooth disorder [Unknown]
  - Dysgraphia [Unknown]
  - Labyrinthitis [Unknown]

NARRATIVE: CASE EVENT DATE: 20180701
